FAERS Safety Report 19995168 (Version 1)
Quarter: 2021Q4

REPORT INFORMATION
  Report Type: Spontaneous
  Country: US (occurrence: US)
  Receive Date: 20211026
  Receipt Date: 20211026
  Transmission Date: 20220303
  Serious: Yes (Other)
  Sender: FDA-Public Use
  Company Number: US-GLAXOSMITHKLINE-US2021GSK219802

PATIENT
  Sex: Female

DRUGS (2)
  1. RANITIDINE [Suspect]
     Active Substance: RANITIDINE
     Indication: Gastric disorder
     Dosage: UNKNOWN AT THIS TIME, 2X DAILY
     Route: 065
     Dates: start: 199001, end: 201112
  2. RANITIDINE [Suspect]
     Active Substance: RANITIDINE
     Indication: Gastric disorder
     Dosage: UNKNOWN AT THIS TIME, 2X DAILY
     Route: 065
     Dates: start: 199001, end: 201112

REACTIONS (1)
  - Colon cancer [Unknown]
